APPROVED DRUG PRODUCT: CLINDAMYCIN PHOSPHATE
Active Ingredient: CLINDAMYCIN PHOSPHATE
Strength: EQ 1% BASE
Dosage Form/Route: SOLUTION;TOPICAL
Application: A062930 | Product #001
Applicant: VINTAGE PHARMACEUTICALS
Approved: Jun 28, 1989 | RLD: No | RS: No | Type: DISCN